FAERS Safety Report 9021685 (Version 1)
Quarter: 2013Q1

REPORT INFORMATION
  Report Type: Spontaneous
  Country: US (occurrence: US)
  Receive Date: 20130119
  Receipt Date: 20130119
  Transmission Date: 20140127
  Serious: No
  Sender: FDA-Public Use
  Company Number: US-ALLERGAN-1203118US

PATIENT
  Age: 64 None
  Sex: Female

DRUGS (7)
  1. BOTOX? [Suspect]
     Indication: MIGRAINE
     Dosage: 30 UNITS, SINGLE
     Route: 030
     Dates: start: 20110415, end: 20110415
  2. BOTOX? [Suspect]
     Dosage: 35 UNITS, SINGLE
     Route: 030
     Dates: start: 20110823, end: 20110823
  3. BOTOX? [Suspect]
     Dosage: 30 UNITS, SINGLE
     Route: 030
     Dates: start: 20111220, end: 20111220
  4. BOTOX? [Suspect]
     Dosage: 30 UNITS, SINGLE
     Route: 030
     Dates: start: 20120111, end: 20120111
  5. BOTOX? [Suspect]
     Dosage: UNK
     Dates: start: 200910, end: 200910
  6. ADVIL                              /00044201/ [Concomitant]
  7. RANITIDINE [Concomitant]

REACTIONS (11)
  - Nervousness [Recovered/Resolved]
  - Sensory disturbance [Recovering/Resolving]
  - Secretion discharge [Recovering/Resolving]
  - Epistaxis [Recovering/Resolving]
  - Inflammation [Recovering/Resolving]
  - Wheezing [Recovering/Resolving]
  - Hypoaesthesia [Recovered/Resolved]
  - Therapeutic response decreased [Unknown]
  - Paranasal sinus hypersecretion [Not Recovered/Not Resolved]
  - Swelling face [Recovering/Resolving]
  - Swelling face [Recovering/Resolving]
